FAERS Safety Report 26006226 (Version 1)
Quarter: 2025Q4

REPORT INFORMATION
  Report Type: Spontaneous
  Country: US (occurrence: None)
  Receive Date: 20251105
  Receipt Date: 20251105
  Transmission Date: 20260118
  Serious: Yes (Hospitalization)
  Sender: FDA-CTU
  Company Number: None

PATIENT
  Sex: Female

DRUGS (2)
  1. KISQALI [Suspect]
     Active Substance: RIBOCICLIB SUCCINATE
     Indication: Breast cancer female
     Dosage: 200MG ORAL??OTHER FREQUENCY : SEE EVENT;?
     Route: 048
     Dates: start: 20251017
  2. KISQALI [Concomitant]
     Active Substance: RIBOCICLIB SUCCINATE

REACTIONS (5)
  - Diarrhoea [None]
  - Vomiting [None]
  - Abdominal pain [None]
  - Immune system disorder [None]
  - Therapy change [None]
